FAERS Safety Report 5979359-X (Version None)
Quarter: 2008Q4

REPORT INFORMATION
  Report Type: 
  Country: None (occurrence: None)
  Receive Date: 20081204
  Receipt Date: 20081121
  Transmission Date: 20090506
  Serious: Yes (Other)
  Sender: FDA-Public Use
  Company Number: DE-GENENTECH-272473

PATIENT
  Age: 60 Year
  Sex: Male

DRUGS (4)
  1. AVASTIN [Suspect]
     Indication: COLORECTAL CANCER
     Dosage: UNK
     Route: 065
     Dates: start: 20080701
  2. FLUOROURACIL [Concomitant]
     Indication: COLORECTAL CANCER
     Dosage: UNK
     Dates: start: 20080701
  3. FOLIC ACID [Concomitant]
     Indication: COLORECTAL CANCER
     Dosage: UNK
     Dates: start: 20080701
  4. OXALIPLATIN [Concomitant]
     Indication: COLORECTAL CANCER
     Dosage: UNK
     Dates: start: 20080701

REACTIONS (1)
  - PLATELET COUNT DECREASED [None]
